FAERS Safety Report 4394594-2 (Version None)
Quarter: 2004Q3

REPORT INFORMATION
  Report Type: 
  Country: None (occurrence: None)
  Receive Date: 20040707
  Receipt Date: 20040623
  Transmission Date: 20050211
  Serious: Yes (Hospitalization)
  Sender: FDA-Public Use
  Company Number: US-JNJFOC-20040606827

PATIENT
  Age: 51 Year
  Sex: Female
  Weight: 95.709 kg

DRUGS (13)
  1. REMICADE [Suspect]
     Indication: CROHN'S DISEASE
     Dosage: SEE IMAGE
     Dates: start: 20040507
  2. REMICADE [Suspect]
     Indication: CROHN'S DISEASE
     Dosage: SEE IMAGE
     Dates: start: 20040521
  3. METHOTREXATE SODIUM [Concomitant]
  4. ASACOL (HYDROCHLORIDE) [Concomitant]
  5. COLOCORT (HYDROCORTISONE) [Concomitant]
  6. ROWASA [Concomitant]
  7. VIOXX [Concomitant]
  8. HYOSCYAMINE (HYOSCYAMINE) [Concomitant]
  9. CYCLOBENZAPRINE (CLYCLOBENZAPRINE) [Concomitant]
  10. ULTRACET [Concomitant]
  11. SEROQUEL (QUETIAPINE FUMARAET) [Concomitant]
  12. PREMARIN (ESTROENS CONJUGATED) [Concomitant]
  13. FOLIC ACID [Concomitant]

REACTIONS (4)
  - DYSPNOEA [None]
  - RESPIRATORY ARREST [None]
  - TOTAL LUNG CAPACITY DECREASED [None]
  - UNEVALUABLE EVENT [None]
